FAERS Safety Report 8181446-5 (Version None)
Quarter: 2012Q1

REPORT INFORMATION
  Report Type: 
  Country: None (occurrence: None)
  Receive Date: 20120126
  Receipt Date: 20111102
  Transmission Date: 20120608
  Serious: Yes (Death)
  Sender: FDA-Public Use
  Company Number: PHEH2011US08466

PATIENT
  Age: 58 Year
  Sex: Female

DRUGS (2)
  1. AFINITOR [Suspect]
     Indication: RENAL CELL CARCINOMA
     Dosage: 10 MG
     Route: 048
     Dates: start: 20100330
  2. AVASTIN [Suspect]
     Indication: RENAL CELL CARCINOMA

REACTIONS (7)
  - CHILLS [None]
  - NAUSEA [None]
  - DEHYDRATION [None]
  - DIARRHOEA [None]
  - NEOPLASM PROGRESSION [None]
  - PYREXIA [None]
  - NEOPLASM MALIGNANT [None]
